FAERS Safety Report 8107492-5 (Version None)
Quarter: 2012Q1

REPORT INFORMATION
  Report Type: 
  Country: None (occurrence: None)
  Receive Date: 20120202
  Receipt Date: 20120127
  Transmission Date: 20120608
  Serious: Yes (Other)
  Sender: FDA-Public Use
  Company Number: US-AMGEN-USASP2012005851

PATIENT
  Age: 50 Year
  Sex: Male

DRUGS (1)
  1. ENBREL [Suspect]
     Indication: RHEUMATOID ARTHRITIS
     Dosage: 50 MG, QWK
     Dates: start: 20080301

REACTIONS (16)
  - RHINORRHOEA [None]
  - RHEUMATOID ARTHRITIS [None]
  - SCAR [None]
  - IMPAIRED HEALING [None]
  - NASOPHARYNGITIS [None]
  - PANIC ATTACK [None]
  - INJECTION SITE PAIN [None]
  - OROPHARYNGEAL PAIN [None]
  - PYREXIA [None]
  - OEDEMA PERIPHERAL [None]
  - EXCORIATION [None]
  - GAIT DISTURBANCE [None]
  - INJECTION SITE SWELLING [None]
  - INJECTION SITE HAEMATOMA [None]
  - GASTROENTERITIS VIRAL [None]
  - PHARYNGITIS STREPTOCOCCAL [None]
